FAERS Safety Report 8925514 (Version 2)
Quarter: 2012Q4

REPORT INFORMATION
  Report Type: 
  Country: US (occurrence: US)
  Receive Date: 20121126
  Receipt Date: 20121217
  Transmission Date: 20130627
  Serious: No
  Sender: FDA-Public Use
  Company Number: US-VERTEX PHARMACEUTICAL INC.-2012-024853

PATIENT
  Age: 50 None
  Sex: Male
  Weight: 66 kg

DRUGS (4)
  1. INCIVEK [Suspect]
     Indication: HEPATITIS C
     Dosage: 750 mg, tid
     Route: 048
     Dates: start: 20120928
  2. RIBAVIRIN [Suspect]
     Indication: HEPATITIS C
     Dosage: 5 DF, qd
     Route: 048
     Dates: start: 20120928
  3. RIBAVIRIN [Suspect]
     Dosage: 3 DF, qd
     Dates: start: 201210
  4. PEGINTRON                          /01543001/ [Suspect]
     Indication: HEPATITIS C
     Dosage: 120 ?g, weekly
     Route: 058
     Dates: start: 20120928

REACTIONS (4)
  - Adverse event [Not Recovered/Not Resolved]
  - Rash erythematous [Recovered/Resolved]
  - Anaemia [Recovered/Resolved]
  - Anal pruritus [Not Recovered/Not Resolved]
